FAERS Safety Report 15431726 (Version 5)
Quarter: 2019Q1

REPORT INFORMATION
  Report Type: Spontaneous
  Country: DE (occurrence: DE)
  Receive Date: 20180926
  Receipt Date: 20190307
  Transmission Date: 20190417
  Serious: Yes (Hospitalization, Other)
  Sender: FDA-Public Use
  Company Number: DE-MYLANLABS-2018M1069939

PATIENT
  Age: 58 Year
  Sex: Female

DRUGS (16)
  1. METOPROLOL. [Suspect]
     Active Substance: METOPROLOL
     Dosage: 0.5 DF, PM
     Route: 065
  2. DOMPERIDONE [Suspect]
     Active Substance: DOMPERIDONE
     Dosage: 30 MILLIGRAM, QD (10 MG, 3X PER DAY)
     Route: 065
  3. METOPROLOL. [Suspect]
     Active Substance: METOPROLOL
     Indication: PRODUCT USED FOR UNKNOWN INDICATION
     Dosage: 1 DF, AM (1 DF IN MORNING AND 0.5 DF IN EVENING), (1-0-0.5-0)
     Route: 065
  4. RANITIDINE. [Suspect]
     Active Substance: RANITIDINE
     Indication: PRODUCT USED FOR UNKNOWN INDICATION
     Dosage: 0.5 DF, (0-0-0-0.5)
     Route: 065
  5. RANITIDINE. [Suspect]
     Active Substance: RANITIDINE
     Dosage: 0.5 DOSAGE FORM, QD (0.5 DF, QHS)
     Route: 048
  6. DOMPERIDONE [Suspect]
     Active Substance: DOMPERIDONE
     Dosage: 4.5 ML, QD, (1.5 ML,TID), (45 MG)
     Route: 065
  7. DOMPERIDONE [Suspect]
     Active Substance: DOMPERIDONE
     Dosage: 45 MILLIGRAM, QD (15 MG, 3X PER DAY )
     Route: 065
  8. CITALOPRAM [Suspect]
     Active Substance: CITALOPRAM HYDROBROMIDE
     Indication: PRODUCT USED FOR UNKNOWN INDICATION
     Dosage: 10 MG, QD (IN MORNING), (1-0-0-0) (10 MG, 1X PER DAY )
     Route: 065
  9. DOMPERIDONE [Suspect]
     Active Substance: DOMPERIDONE
     Indication: PRODUCT USED FOR UNKNOWN INDICATION
     Dosage: 10 MG, TID (1.5 ML)
     Route: 065
  10. BETHANECHOL [Suspect]
     Active Substance: BETHANECHOL
     Indication: PRODUCT USED FOR UNKNOWN INDICATION
     Dosage: 25 MG, TID (MORNING, AFTERNOON AND EVENING),  (1-1-1-0)
     Route: 065
  11. METOPROLOL. [Suspect]
     Active Substance: METOPROLOL
     Dosage: 2 DOSAGE FORM, QD
     Route: 065
  12. METOPROLOL. [Suspect]
     Active Substance: METOPROLOL
     Dosage: 3 DOSAGE FORM, QD (1.5 DF, 2X PER DAY )
     Route: 065
  13. METOPROLOL. [Suspect]
     Active Substance: METOPROLOL
     Dosage: 1.5 DOSAGE FORM, QD (1 DF IN MORNING AND 0.5 DF IN EVENING)
     Route: 065
  14. ONDANSETRON [Suspect]
     Active Substance: ONDANSETRON
     Indication: PRODUCT USED FOR UNKNOWN INDICATION
     Dosage: 4 MG, BID (MORNING AND EVENING),  (1-0-1-0)
     Route: 065
  15. ONDANSETRON [Suspect]
     Active Substance: ONDANSETRON
     Dosage: 8 MILLIGRAM, QD (4 MG, 2X PER DAY)
     Route: 065
  16. BETHANECHOL [Suspect]
     Active Substance: BETHANECHOL
     Dosage: 75 MILLIGRAM, QD (25 MG, 3X PER DAY )
     Route: 065

REACTIONS (3)
  - Off label use [Unknown]
  - Medication error [Unknown]
  - Peritonitis [Unknown]
